FAERS Safety Report 24900561 (Version 3)
Quarter: 2025Q3

REPORT INFORMATION
  Report Type: Spontaneous
  Country: US (occurrence: US)
  Receive Date: 20250129
  Receipt Date: 20250711
  Transmission Date: 20251021
  Serious: No
  Sender: MYLAN
  Company Number: US-MYLANLABS-2025M1004010

PATIENT
  Sex: Female

DRUGS (8)
  1. NITROGLYCERIN TRANSDERMAL DELIVERY SYSTEM [Suspect]
     Active Substance: NITROGLYCERIN
     Indication: Product used for unknown indication
     Dosage: 0.2 MILLIGRAM, QH (EVERY HOUR), ONCE A DAY ON THE SKIN OF THE PATIENT^S ARM BELOW THE SHOULDER
     Route: 062
  2. NITROGLYCERIN TRANSDERMAL DELIVERY SYSTEM [Suspect]
     Active Substance: NITROGLYCERIN
     Dosage: 0.2 MILLIGRAM, QH (EVERY HOUR), ONCE A DAY ON THE SKIN OF THE PATIENT^S ARM BELOW THE SHOULDER
  3. NITROGLYCERIN TRANSDERMAL DELIVERY SYSTEM [Suspect]
     Active Substance: NITROGLYCERIN
     Dosage: 0.2 MILLIGRAM, QH (EVERY HOUR), ONCE A DAY ON THE SKIN OF THE PATIENT^S ARM BELOW THE SHOULDER
  4. NITROGLYCERIN TRANSDERMAL DELIVERY SYSTEM [Suspect]
     Active Substance: NITROGLYCERIN
     Dosage: 0.2 MILLIGRAM, QH (EVERY HOUR), ONCE A DAY ON THE SKIN OF THE PATIENT^S ARM BELOW THE SHOULDER
     Route: 062
  5. NITROGLYCERIN TRANSDERMAL DELIVERY SYSTEM [Suspect]
     Active Substance: NITROGLYCERIN
     Dosage: 0.2 MILLIGRAM, QH (EVERY HOUR), ONCE A DAY ON THE SKIN OF THE PATIENT^S ARM BELOW THE SHOULDER
     Route: 062
     Dates: start: 2025
  6. NITROGLYCERIN TRANSDERMAL DELIVERY SYSTEM [Suspect]
     Active Substance: NITROGLYCERIN
     Dosage: 0.2 MILLIGRAM, QH (EVERY HOUR), ONCE A DAY ON THE SKIN OF THE PATIENT^S ARM BELOW THE SHOULDER
     Dates: start: 2025
  7. NITROGLYCERIN TRANSDERMAL DELIVERY SYSTEM [Suspect]
     Active Substance: NITROGLYCERIN
     Dosage: 0.2 MILLIGRAM, QH (EVERY HOUR), ONCE A DAY ON THE SKIN OF THE PATIENT^S ARM BELOW THE SHOULDER
     Dates: start: 2025
  8. NITROGLYCERIN TRANSDERMAL DELIVERY SYSTEM [Suspect]
     Active Substance: NITROGLYCERIN
     Dosage: 0.2 MILLIGRAM, QH (EVERY HOUR), ONCE A DAY ON THE SKIN OF THE PATIENT^S ARM BELOW THE SHOULDER
     Route: 062
     Dates: start: 2025

REACTIONS (2)
  - Rash macular [Recovered/Resolved]
  - Product adhesion issue [Unknown]
